FAERS Safety Report 8583492-6 (Version None)
Quarter: 2012Q3

REPORT INFORMATION
  Report Type: 
  Country: None (occurrence: None)
  Receive Date: 20120809
  Receipt Date: 20120731
  Transmission Date: 20120928
  Serious: Yes (Hospitalization)
  Sender: FDA-Public Use
  Company Number: JP-AMGEN-JPNCT2012047161

PATIENT
  Age: 74 Year
  Sex: Male
  Weight: 58 kg

DRUGS (29)
  1. FLUOROURACIL [Concomitant]
     Indication: COLORECTAL CANCER
     Dosage: 3800 MG, Q2WK
     Route: 040
     Dates: start: 20120706, end: 20120706
  2. LEVOLEUCOVORIN CALCIUM [Concomitant]
     Indication: COLORECTAL CANCER
     Dosage: 300 MG, Q2WK
     Route: 041
     Dates: start: 20120706, end: 20120706
  3. LOCOID [Concomitant]
     Route: 062
     Dates: start: 20120706, end: 20120719
  4. PRIMPERAN TAB [Concomitant]
     Dosage: 10 MG, QD
     Route: 042
     Dates: start: 20120707, end: 20120712
  5. ADONA [Concomitant]
     Dosage: 30 MG, TID
     Route: 048
  6. PANITUMUMAB [Suspect]
     Indication: COLORECTAL CANCER
     Dosage: 340 MG, Q2WK
     Route: 041
     Dates: start: 20120706, end: 20120706
  7. LEVEMIR [Concomitant]
     Indication: DIABETES MELLITUS
     Dosage: 6 IU, BID
     Route: 042
  8. DECADRON PHOSPHATE [Concomitant]
     Dosage: 20 MG, BID
     Route: 048
     Dates: start: 20120707, end: 20120707
  9. LASIX [Concomitant]
     Dosage: 20 MG, BID
     Route: 042
     Dates: start: 20120709, end: 20120716
  10. HIRUDOID [Concomitant]
     Route: 062
     Dates: start: 20120706
  11. NORVASC [Concomitant]
     Dosage: 5 MG, BID
     Route: 048
  12. CEFAZOLIN SODIUM [Concomitant]
     Dosage: 3 G, TID
     Route: 048
  13. NOVOLIN R [Concomitant]
     Dosage: 12 IU, QD
     Route: 042
     Dates: start: 20120707
  14. MINOCYCLINE HYDROCHLORIDE [Concomitant]
     Dosage: 100 MG, BID
     Route: 048
     Dates: start: 20120707, end: 20120721
  15. FERROUS CITRATE [Concomitant]
     Dosage: 100 MG, QD
     Route: 048
  16. AMARYL [Concomitant]
     Dosage: 1 MG, BID
     Route: 048
     Dates: end: 20120716
  17. DIOVAN [Concomitant]
     Dosage: 40 MG, BID
     Route: 048
  18. DAIKENTYUTO [Concomitant]
     Dosage: 7.5 G, TID
     Route: 048
     Dates: end: 20120711
  19. SOLDACTONE [Concomitant]
     Dosage: 100 MG, QD
     Route: 042
     Dates: start: 20120709, end: 20120716
  20. INNOLET 30R [Concomitant]
     Indication: DIABETES MELLITUS
     Dosage: 4 IU, TID
     Route: 042
  21. HALOPERIDOL [Concomitant]
     Dosage: 5 MG, QD
     Route: 042
     Dates: start: 20120707, end: 20120708
  22. DOXAZOSIN MESYLATE [Concomitant]
     Dosage: 2 MG, BID
     Route: 048
  23. OXALIPLATIN [Concomitant]
     Indication: COLORECTAL CANCER
     Route: 041
     Dates: start: 20120706
  24. TOPOTECAN [Concomitant]
     Indication: COLORECTAL CANCER
     Dosage: 240 MG, Q2WK
     Route: 041
     Dates: start: 20120706, end: 20120706
  25. BASEN [Concomitant]
     Dosage: 0.3 MG, TID
     Route: 048
     Dates: start: 20120709, end: 20120719
  26. ALOXI [Concomitant]
     Indication: PROPHYLAXIS OF NAUSEA AND VOMITING
     Dosage: 0.75 MG, Q2WK
     Route: 041
     Dates: start: 20120706, end: 20120706
  27. PANTOSIN [Concomitant]
     Dosage: 200 MG, TID
     Route: 048
  28. VITAMIN B12 [Concomitant]
     Dosage: 0.5 MG, TID
     Route: 048
  29. SENNOSIDE [Concomitant]
     Dosage: 36 MG, QD
     Route: 048

REACTIONS (1)
  - INTERSTITIAL LUNG DISEASE [None]
